FAERS Safety Report 22218981 (Version 2)
Quarter: 2023Q2

REPORT INFORMATION
  Report Type: Spontaneous
  Country: US (occurrence: US)
  Receive Date: 20230417
  Receipt Date: 20230628
  Transmission Date: 20230722
  Serious: No
  Sender: FDA-Public Use
  Company Number: US-BAYER-2023A047603

PATIENT
  Age: 42 Year
  Sex: Female
  Weight: 88.435 kg

DRUGS (4)
  1. MIRENA [Suspect]
     Active Substance: LEVONORGESTREL
     Indication: Intra-uterine contraceptive device insertion
     Dosage: 20?G/DAY
     Route: 015
     Dates: start: 20221027
  2. LEXAPRO [Concomitant]
     Active Substance: ESCITALOPRAM OXALATE
  3. VITAMINS [Concomitant]
     Active Substance: VITAMINS
  4. ZINC [Concomitant]
     Active Substance: ZINC

REACTIONS (6)
  - Menstruation irregular [None]
  - Amenorrhoea [None]
  - Heavy menstrual bleeding [None]
  - Device dislocation [Not Recovered/Not Resolved]
  - Uterine leiomyoma [None]
  - Uterine pain [None]

NARRATIVE: CASE EVENT DATE: 20230227
